FAERS Safety Report 16969063 (Version 1)
Quarter: 2019Q4

REPORT INFORMATION
  Report Type: Spontaneous
  Country: GB (occurrence: GB)
  Receive Date: 20191029
  Receipt Date: 20191029
  Transmission Date: 20200122
  Serious: Yes (Death, Other)
  Sender: FDA-Public Use
  Company Number: GB-TEVA-2019-GB-1127664

PATIENT
  Age: 33 Year
  Sex: Female
  Weight: 84 kg

DRUGS (13)
  1. DIPROBASE [Concomitant]
     Active Substance: CHLOROCRESOL
     Dosage: APPLY
     Dates: start: 20050527
  2. RAMIPRIL. [Concomitant]
     Active Substance: RAMIPRIL
     Dosage: 1 DF
     Dates: start: 20180404
  3. ACETYLSALICYLIC ACID [Concomitant]
     Active Substance: ASPIRIN
     Dosage: 1 DF
     Dates: start: 20130722
  4. AMLODIPINE [Concomitant]
     Active Substance: AMLODIPINE BESYLATE
     Dates: start: 20170405
  5. INDAPAMIDE. [Concomitant]
     Active Substance: INDAPAMIDE
     Dosage: 1 DF TAKE IN MORNING
     Dates: start: 20151202
  6. ACICLOVIR [Concomitant]
     Active Substance: ACYCLOVIR
     Dosage: 5 DF
     Dates: start: 20130722
  7. PARACETAMOL [Concomitant]
     Active Substance: ACETAMINOPHEN
     Dosage: TAKE 1 OR 2 4 TIMES/DAY
     Dates: start: 20140808
  8. MICROGYNON [Concomitant]
     Active Substance: ETHINYL ESTRADIOL\LEVONORGESTREL ACETATE
     Dosage: AS DIRECTED
     Dates: start: 20140107
  9. LEVONELLE [Concomitant]
     Active Substance: LEVONORGESTREL
     Dosage: 1 DF AS DIRECTED
     Dates: start: 20140107
  10. IBUPROFEN. [Concomitant]
     Active Substance: IBUPROFEN
     Dosage: TAKE ONE EVERY 4 HRS
     Dates: start: 20131118
  11. BISOPROLOL [Concomitant]
     Active Substance: BISOPROLOL
     Dosage: 1 DF
     Dates: start: 20150611
  12. AMOXICILLIN. [Concomitant]
     Active Substance: AMOXICILLIN
     Dosage: 15 ML
     Dates: start: 20190814, end: 20190820
  13. SALBUTAMOL [Suspect]
     Active Substance: ALBUTEROL
     Dosage: 5MG/ML
     Dates: start: 20031118

REACTIONS (1)
  - Death [Fatal]
